FAERS Safety Report 7526188-1 (Version None)
Quarter: 2011Q2

REPORT INFORMATION
  Report Type: 
  Country: None (occurrence: None)
  Receive Date: 20110606
  Receipt Date: 20100617
  Transmission Date: 20111010
  Serious: No
  Sender: FDA-Public Use
  Company Number: US-BRISTOL-MYERS SQUIBB COMPANY-15122096

PATIENT
  Sex: Male

DRUGS (1)
  1. SUSTIVA [Suspect]
     Route: 048
     Dates: start: 20020701

REACTIONS (1)
  - T-LYMPHOCYTE COUNT DECREASED [None]
